FAERS Safety Report 23591571 (Version 1)
Quarter: 2024Q1

REPORT INFORMATION
  Report Type: Spontaneous
  Country: US (occurrence: None)
  Receive Date: 20240302
  Receipt Date: 20240302
  Transmission Date: 20240410
  Serious: Yes (Death)
  Sender: FDA-Public Use
  Company Number: None

PATIENT
  Sex: Female
  Weight: 70.4 kg

DRUGS (2)
  1. CARBOPLATIN [Suspect]
     Active Substance: CARBOPLATIN
     Dates: start: 20201103, end: 20201103
  2. TAXOL [Suspect]
     Active Substance: PACLITAXEL
     Dates: start: 20201103, end: 20201103

REACTIONS (3)
  - COVID-19 [None]
  - Myocardial infarction [None]
  - Internal haemorrhage [None]

NARRATIVE: CASE EVENT DATE: 20201119
